FAERS Safety Report 18927178 (Version 1)
Quarter: 2021Q1

REPORT INFORMATION
  Report Type: Spontaneous
  Country: US (occurrence: US)
  Receive Date: 20210222
  Receipt Date: 20210222
  Transmission Date: 20210420
  Serious: No
  Sender: FDA-Public Use
  Company Number: None

PATIENT
  Age: 40 Year
  Sex: Female
  Weight: 67.5 kg

DRUGS (1)
  1. PROGESTERONE 200MG CAPS [Suspect]
     Active Substance: PROGESTERONE
     Indication: MENSTRUATION IRREGULAR
     Dosage: ?          QUANTITY:12 CAPSULE(S);?
     Route: 048
     Dates: start: 20210211, end: 20210211

REACTIONS (2)
  - Hypoaesthesia [None]
  - Hypoaesthesia oral [None]
